FAERS Safety Report 8373570-9 (Version None)
Quarter: 2012Q2

REPORT INFORMATION
  Report Type: 
  Country: None (occurrence: None)
  Receive Date: 20120521
  Receipt Date: 20110812
  Transmission Date: 20120825
  Serious: No
  Sender: FDA-Public Use
  Company Number: US-TEVA-2011004281

PATIENT
  Sex: Female

DRUGS (8)
  1. RITUXAN [Suspect]
  2. CYTOXAN [Concomitant]
  3. TREANDA [Suspect]
     Route: 042
  4. PREDNISONE [Concomitant]
  5. ONCOVIN [Concomitant]
  6. GLIPIZIDE [Concomitant]
  7. METFORMIN B [Concomitant]
  8. ASCORBIC ACID [Concomitant]

REACTIONS (5)
  - ALOPECIA [None]
  - PARAESTHESIA [None]
  - INSOMNIA [None]
  - PAIN [None]
  - BALANCE DISORDER [None]
